FAERS Safety Report 7507503-1 (Version None)
Quarter: 2011Q2

REPORT INFORMATION
  Report Type: 
  Country: None (occurrence: None)
  Receive Date: 20110526
  Receipt Date: 20100609
  Transmission Date: 20111010
  Serious: No
  Sender: FDA-Public Use
  Company Number: US-MYLANLABS-2010S1008463

PATIENT
  Age: 71 Year
  Sex: Female

DRUGS (1)
  1. ZOLPIDEM TARTRATE [Suspect]
     Indication: INSOMNIA

REACTIONS (2)
  - TERMINAL INSOMNIA [None]
  - ABNORMAL DREAMS [None]
